FAERS Safety Report 19676387 (Version 2)
Quarter: 2021Q3

REPORT INFORMATION
  Report Type: Spontaneous
  Country: US (occurrence: US)
  Receive Date: 20210809
  Receipt Date: 20210826
  Transmission Date: 20211014
  Serious: Yes (Hospitalization, Other)
  Sender: FDA-Public Use
  Company Number: US-BRAINTREE LABORATORIES, INC.-2021BTE00647

PATIENT
  Age: 83 Year
  Sex: Female
  Weight: 70.7 kg

DRUGS (11)
  1. SUPREP BOWEL PREP [Suspect]
     Active Substance: MAGNESIUM SULFATE\POTASSIUM SULFATE\SODIUM SULFATE
     Indication: COLONOSCOPY
     Dosage: 2 X 6 OZ. BOTTLE., 1 X
     Route: 048
     Dates: start: 20210523, end: 20210524
  2. ZETIA [Concomitant]
     Active Substance: EZETIMIBE
     Dosage: 10 MG, 1X/DAY
  3. TOPROL XL [Concomitant]
     Active Substance: METOPROLOL SUCCINATE
     Dosage: 50 MG, 1X/DAY
  4. METAMUCIL [Concomitant]
     Active Substance: PLANTAGO SEED
     Dosage: 1.7 G, UP TO 3X/DAY AS NEEDED
     Route: 048
  5. SERTRALINE [Concomitant]
     Active Substance: SERTRALINE HYDROCHLORIDE
  6. CRESTOR [Concomitant]
     Active Substance: ROSUVASTATIN CALCIUM
     Dosage: 20 MG, 1X/DAY
  7. TYLENOL PM [Concomitant]
     Active Substance: ACETAMINOPHEN\DIPHENHYDRAMINE
  8. CREON DELAYED RELEASE [Concomitant]
     Dosage: 12000 IU, 3X/DAY
     Route: 048
  9. CREON DELAYED RELEASE [Concomitant]
     Dosage: 36000 IU, 3X/DAY
     Route: 048
  10. CALCIUM 600 + D [Concomitant]
     Active Substance: CALCIUM\VITAMIN D
     Dosage: 1 TABLETS, 1X/DAY
     Route: 048
  11. ASPIRIN. [Concomitant]
     Active Substance: ASPIRIN

REACTIONS (10)
  - Ankle fracture [Recovering/Resolving]
  - Dehydration [Unknown]
  - Ligament rupture [Recovering/Resolving]
  - Asthenia [Recovering/Resolving]
  - Hyperglycaemia [Unknown]
  - Pancreatic failure [Not Recovered/Not Resolved]
  - Fall [Recovered/Resolved]
  - Presyncope [Recovered/Resolved]
  - Dizziness [Recovering/Resolving]
  - Ligament sprain [Recovering/Resolving]

NARRATIVE: CASE EVENT DATE: 20210524
